FAERS Safety Report 10425129 (Version 4)
Quarter: 2015Q2

REPORT INFORMATION
  Report Type: Spontaneous
  Country: JP (occurrence: JP)
  Receive Date: 20140902
  Receipt Date: 20150623
  Transmission Date: 20150821
  Serious: Yes (Hospitalization, Other)
  Sender: FDA-Public Use
  Company Number: JP-GLAXOSMITHKLINE-B1028415A

PATIENT
  Age: 83 Year
  Sex: Female
  Weight: 54.6 kg

DRUGS (12)
  1. AMLODIPINE [Concomitant]
     Active Substance: AMLODIPINE BESYLATE
  2. METFORMIN HYDROCHLORIDE. [Concomitant]
     Active Substance: METFORMIN HYDROCHLORIDE
     Indication: TYPE 2 DIABETES MELLITUS
     Dosage: UNK
  3. GLACTIV [Concomitant]
     Active Substance: SITAGLIPTIN
  4. AMARYL [Concomitant]
     Active Substance: GLIMEPIRIDE
  5. LIVALO [Concomitant]
     Active Substance: PITAVASTATIN CALCIUM
  6. VALACICLOVIR HYDROCHLORIDE [Suspect]
     Active Substance: VALACYCLOVIR HYDROCHLORIDE
     Indication: HERPES ZOSTER
     Dosage: 1000 MG, TID
     Route: 048
     Dates: start: 20140818, end: 20140821
  7. AROTINOLOL HYDROCHLORIDE [Concomitant]
     Active Substance: AROTINOLOL HYDROCHLORIDE
  8. METGLUCO [Concomitant]
     Active Substance: METFORMIN HYDROCHLORIDE
  9. EXFORGE [Concomitant]
     Active Substance: AMLODIPINE BESYLATE\VALSARTAN
     Dosage: UNK
  10. NATRIX [Concomitant]
     Active Substance: INDAPAMIDE
  11. LOXONIN [Suspect]
     Active Substance: LOXOPROFEN SODIUM
     Indication: PAIN
     Dosage: 60 MG, BID
     Route: 048
     Dates: start: 20140818, end: 20140821
  12. RAIPECK [Suspect]
     Active Substance: ETODOLAC
     Indication: PAIN IN EXTREMITY
     Dosage: 200 MG, BID
     Route: 048
     Dates: end: 20140818

REACTIONS (5)
  - Blood creatinine increased [Unknown]
  - Renal failure [Recovering/Resolving]
  - Malaise [Unknown]
  - Dysarthria [Recovering/Resolving]
  - Renal disorder [Recovering/Resolving]

NARRATIVE: CASE EVENT DATE: 20140821
